FAERS Safety Report 12555775 (Version 2)
Quarter: 2017Q3

REPORT INFORMATION
  Report Type: Spontaneous
  Country: TR (occurrence: TR)
  Receive Date: 20160714
  Receipt Date: 20170828
  Transmission Date: 20171127
  Serious: Yes (Hospitalization, Other)
  Sender: FDA-Public Use
  Company Number: TR-ALVOGEN-2016-ALVOGEN-025930

PATIENT
  Age: 87 Year
  Sex: Female

DRUGS (6)
  1. DABIGATRAN [Interacting]
     Active Substance: DABIGATRAN
     Indication: INTERNATIONAL NORMALISED RATIO ABNORMAL
  2. REPAGLINIDE. [Concomitant]
     Active Substance: REPAGLINIDE
     Indication: PRODUCT USED FOR UNKNOWN INDICATION
  3. INDAPAMIDE/PERINDOPRIL ERBUMINE [Concomitant]
     Indication: PRODUCT USED FOR UNKNOWN INDICATION
  4. WARFARIN [Concomitant]
     Active Substance: WARFARIN
     Indication: PRODUCT USED FOR UNKNOWN INDICATION
  5. FUROSEMIDE. [Concomitant]
     Active Substance: FUROSEMIDE
     Indication: PRODUCT USED FOR UNKNOWN INDICATION
  6. NIFEDIPINE. [Suspect]
     Active Substance: NIFEDIPINE
     Indication: ATRIAL FIBRILLATION

REACTIONS (3)
  - Drug interaction [Recovered/Resolved]
  - International normalised ratio increased [Recovered/Resolved]
  - Gastrointestinal haemorrhage [Recovered/Resolved]
